FAERS Safety Report 7215979-2 (Version None)
Quarter: 2011Q1

REPORT INFORMATION
  Report Type: 
  Country: None (occurrence: None)
  Receive Date: 20110107
  Receipt Date: 20101231
  Transmission Date: 20110831
  Serious: Yes (Death, Other)
  Sender: FDA-Public Use
  Company Number: MX-SANOFI-AVENTIS-2011SA000005

PATIENT
  Age: 85 Year
  Sex: Female

DRUGS (6)
  1. LANTUS [Suspect]
     Indication: TYPE 2 DIABETES MELLITUS
     Route: 058
     Dates: start: 20050101, end: 20100101
  2. CORDARONE [Suspect]
     Indication: ARRHYTHMIA
     Route: 048
     Dates: end: 20100101
  3. ACETYLSALICYLIC ACID [Concomitant]
     Indication: PROPHYLAXIS
     Route: 048
     Dates: end: 20100101
  4. LASIX [Suspect]
     Indication: DIURETIC THERAPY
     Route: 048
     Dates: start: 20070101, end: 20100101
  5. NORVASC [Concomitant]
     Route: 048
     Dates: end: 20100101
  6. EUTIROX [Concomitant]
     Indication: HYPERTHYROIDISM
     Route: 048
     Dates: start: 20000101, end: 20100101

REACTIONS (3)
  - PULMONARY OEDEMA [None]
  - DEEP VEIN THROMBOSIS [None]
  - CARDIAC FAILURE [None]
